FAERS Safety Report 8960420 (Version 1)
Quarter: 2012Q4

REPORT INFORMATION
  Report Type: 
  Country: US (occurrence: US)
  Receive Date: 20121211
  Receipt Date: 20121211
  Transmission Date: 20130627
  Serious: No
  Sender: FDA-Public Use
  Company Number: US-PFIZER INC-2012307001

PATIENT
  Age: 45 Year
  Sex: Male

DRUGS (1)
  1. AROMASIN [Suspect]
     Indication: MALIGNANT BREAST NEOPLASM MALE
     Dosage: 25 mg, UNK
     Dates: start: 20120417, end: 20121022

REACTIONS (3)
  - Disease progression [Unknown]
  - Breast cancer male [Unknown]
  - Off label use [Unknown]
